FAERS Safety Report 9539250 (Version 3)
Quarter: 2013Q4

REPORT INFORMATION
  Report Type: Report from Study
  Country: JP (occurrence: JP)
  Receive Date: 20130920
  Receipt Date: 20131122
  Transmission Date: 20140711
  Serious: Yes (Other)
  Sender: FDA-Public Use
  Company Number: JP-VERTEX PHARMACEUTICALS INC-AE-2012-011713

PATIENT
  Age: 61 Year
  Sex: Male

DRUGS (20)
  1. VX-950 (TELAPREVIR) [Suspect]
     Indication: CHRONIC HEPATITIS C
     Dosage: 2250 MG, QD
     Route: 048
     Dates: start: 20120424, end: 20120611
  2. VX-950 (TELAPREVIR) [Suspect]
     Dosage: 1500 MG, QD
     Route: 048
     Dates: start: 20120703, end: 20120705
  3. RIBAVIRIN [Suspect]
     Indication: CHRONIC HEPATITIS C
     Dosage: 1000 MG, QD
     Route: 048
     Dates: start: 20120424, end: 20120507
  4. RIBAVIRIN [Suspect]
     Dosage: 800 MG, QD
     Route: 048
     Dates: start: 20120508, end: 20120514
  5. RIBAVIRIN [Suspect]
     Dosage: 400 MG, QD
     Route: 048
     Dates: start: 20120515, end: 20120730
  6. RIBAVIRIN [Suspect]
     Dosage: 600 MG, QD
     Route: 048
     Dates: start: 20120731
  7. PEGINTERFERON ALFA-2B [Suspect]
     Indication: CHRONIC HEPATITIS C
     Dosage: 1.5 ?G/KG, QW
     Route: 058
     Dates: start: 20120424
  8. ZYLORIC [Concomitant]
     Dosage: 100 MG, QD
     Route: 048
     Dates: end: 20120521
  9. ZYLORIC [Concomitant]
     Dosage: 100 MG, QD
     Route: 048
     Dates: start: 20120619
  10. PARIET [Concomitant]
     Dosage: 10 MG, QD
     Route: 048
     Dates: start: 20120612, end: 20120630
  11. PARIET [Concomitant]
     Dosage: 10 MG, QD
     Route: 048
     Dates: start: 20120706, end: 20120718
  12. PREDONINE [Concomitant]
     Dosage: 20 MG, QD
     Route: 048
     Dates: start: 20120703, end: 20120705
  13. GLACTIV [Concomitant]
     Dosage: 50 MG, QD
     Route: 048
     Dates: start: 20120703, end: 20120709
  14. LANTUS [Concomitant]
     Dosage: 6 DF, QD
     Route: 058
     Dates: start: 20120710, end: 20120813
  15. NORVASC OD [Concomitant]
     Dosage: 10 MG, QD
     Route: 048
  16. GASTER [Concomitant]
     Dosage: 20 MG, QD
     Route: 042
     Dates: start: 20120612, end: 20120612
  17. METGLUCO [Concomitant]
     Dosage: 500 MG, QD
     Route: 048
     Dates: start: 20120814
  18. SEISHOKU [Concomitant]
     Dosage: 100 ML, QD
     Route: 042
     Dates: start: 20121004, end: 20121004
  19. POLARAMINE [Concomitant]
     Dosage: 5 MG, QD
     Route: 042
     Dates: start: 20121004, end: 20121004
  20. ALESION [Concomitant]
     Dosage: 20 MG, QD
     Route: 048
     Dates: start: 20121009

REACTIONS (1)
  - Generalised erythema [Recovered/Resolved]
